FAERS Safety Report 7308646-8 (Version None)
Quarter: 2011Q1

REPORT INFORMATION
  Report Type: 
  Country: None (occurrence: None)
  Receive Date: 20110223
  Receipt Date: 20110216
  Transmission Date: 20110831
  Serious: Yes (Disabling, Other)
  Sender: FDA-Public Use
  Company Number: US-MERCK-0610USA12817

PATIENT
  Age: 55 Year
  Sex: Female
  Weight: 50 kg

DRUGS (6)
  1. ZETIA [Concomitant]
     Route: 048
  2. ADVIL LIQUI-GELS [Concomitant]
     Route: 065
  3. CALCIUM (UNSPECIFIED) [Concomitant]
     Route: 065
  4. BONIVA [Suspect]
     Route: 048
     Dates: start: 20050101, end: 20080101
  5. FOSAMAX [Suspect]
     Indication: OSTEOPOROSIS
     Route: 048
     Dates: start: 20000101, end: 20080101
  6. FOSAMAX [Suspect]
     Route: 048
     Dates: start: 20001230, end: 20010101

REACTIONS (16)
  - URINARY TRACT DISORDER [None]
  - BREAST PAIN [None]
  - WEIGHT INCREASED [None]
  - JAW FRACTURE [None]
  - SKIN DISORDER [None]
  - BLOOD CHOLESTEROL INCREASED [None]
  - FOREIGN BODY IN EYE [None]
  - OSTEOMYELITIS [None]
  - ORAL INFECTION [None]
  - INGROWING NAIL [None]
  - ANGINA PECTORIS [None]
  - PALPITATIONS [None]
  - OESOPHAGEAL DISORDER [None]
  - JAW DISORDER [None]
  - OSTEONECROSIS OF JAW [None]
  - TOOTH DISORDER [None]
